FAERS Safety Report 5822305-X (Version None)
Quarter: 2008Q3

REPORT INFORMATION
  Report Type: 
  Country: None (occurrence: None)
  Receive Date: 20080725
  Receipt Date: 20080403
  Transmission Date: 20090109
  Serious: No
  Sender: FDA-Public Use
  Company Number: US-AMGEN-KDL272897

PATIENT
  Sex: Female
  Weight: 67.2 kg

DRUGS (3)
  1. PROCRIT [Suspect]
     Indication: RENAL FAILURE CHRONIC
     Dates: start: 20071201
  2. UNSPECIFIED DIURETIC [Concomitant]
  3. UNSPECIFIED MEDICATION [Concomitant]

REACTIONS (3)
  - ASTHENIA [None]
  - FATIGUE [None]
  - SOMNOLENCE [None]
